FAERS Safety Report 9914546 (Version 1)
Quarter: 2014Q1

REPORT INFORMATION
  Report Type: Spontaneous
  Country: US (occurrence: US)
  Receive Date: 20140220
  Receipt Date: 20140220
  Transmission Date: 20141002
  Serious: Yes (Other)
  Sender: FDA-Public Use
  Company Number: PHHY2014US018575

PATIENT
  Sex: Male
  Weight: 3.78 kg

DRUGS (5)
  1. EVEROLIMUS [Suspect]
     Dosage: MATERNAL DOSE, 0.75 MG, DAILY
     Route: 064
  2. EVEROLIMUS [Suspect]
     Dosage: MATERNAL DOSE:0.5MG, BID
     Route: 064
  3. AZATHIOPRINE [Suspect]
     Dosage: MATERNAL DOSE: 50 MG, DAILY
     Route: 064
  4. PREDNISONE [Suspect]
     Dosage: MATERNAL DOSE: 5 MG
     Route: 064
  5. PRENATAL VITAMINS [Suspect]
     Route: 064

REACTIONS (2)
  - Neonatal aspiration [Recovering/Resolving]
  - Foetal exposure during pregnancy [Unknown]
